FAERS Safety Report 5749823-7 (Version None)
Quarter: 2008Q2

REPORT INFORMATION
  Report Type: 
  Country: None (occurrence: None)
  Receive Date: 20080527
  Receipt Date: 20080519
  Transmission Date: 20081010
  Serious: Yes (Hospitalization, Other)
  Sender: FDA-Public Use
  Company Number: US-BAYER-200717292NA

PATIENT
  Age: 52 Year
  Sex: Female
  Weight: 66 kg

DRUGS (3)
  1. MAGNEVIST [Suspect]
     Indication: NUCLEAR MAGNETIC RESONANCE IMAGING
     Dosage: TOTAL DAILY DOSE: 13 ML
     Route: 042
     Dates: start: 20071205, end: 20071205
  2. METHOTREXATE [Concomitant]
  3. PREDNISONE TAB [Concomitant]
     Dosage: TOTAL DAILY DOSE: 5 MG

REACTIONS (11)
  - ANAPHYLACTOID REACTION [None]
  - DYSPHAGIA [None]
  - DYSPNOEA [None]
  - ERYTHEMA [None]
  - EYE IRRITATION [None]
  - EYE SWELLING [None]
  - FEELING HOT [None]
  - NASAL CONGESTION [None]
  - PRURITUS [None]
  - RASH PAPULAR [None]
  - URTICARIA [None]
